FAERS Safety Report 23079289 (Version 2)
Quarter: 2023Q4

REPORT INFORMATION
  Report Type: Spontaneous
  Country: JP (occurrence: JP)
  Receive Date: 20231018
  Receipt Date: 20231120
  Transmission Date: 20240110
  Serious: Yes (Other)
  Sender: FDA-Public Use
  Company Number: JP-PFIZER INC-PV202300172263

PATIENT
  Age: 9 Year
  Weight: 24 kg

DRUGS (1)
  1. FOSPHENYTOIN SODIUM [Suspect]
     Active Substance: FOSPHENYTOIN SODIUM
     Indication: Status epilepticus
     Dosage: 22.5 MG/KG,1 D
     Route: 042
     Dates: start: 20231010

REACTIONS (3)
  - Encephalopathy [Recovered/Resolved]
  - Ventricular fibrillation [Unknown]
  - COVID-19 [Recovered/Resolved]
